FAERS Safety Report 7122500-6 (Version None)
Quarter: 2010Q4

REPORT INFORMATION
  Report Type: 
  Country: None (occurrence: None)
  Receive Date: 20101124
  Receipt Date: 20101119
  Transmission Date: 20110411
  Serious: No
  Sender: FDA-Public Use
  Company Number: US-B.I. PHARMACEUTICALS,INC./RIDGEFIELD-2010-BP-13075BP

PATIENT
  Sex: Female

DRUGS (7)
  1. SPIRIVA [Suspect]
     Indication: BRONCHIECTASIS
     Dosage: 18 MCG
     Route: 055
     Dates: start: 20100301
  2. SYNTHROID [Concomitant]
     Indication: HYPOTHYROIDISM
     Dosage: 0.5 MCG
     Route: 048
  3. VASOTEC [Concomitant]
     Indication: HYPERTENSION
     Dosage: 2.5 MG
     Route: 048
  4. ADVAIR HFA [Concomitant]
     Indication: BRONCHIECTASIS
     Dosage: 115 MG
     Route: 055
  5. ADVAIR HFA [Concomitant]
     Indication: ASTHMA
  6. ANTIVERT [Concomitant]
     Indication: VERTIGO
     Route: 048
  7. OXYGEN AT NIGHT [Concomitant]
     Indication: BRONCHIECTASIS
     Route: 055

REACTIONS (1)
  - CORNEAL ABRASION [None]
